FAERS Safety Report 9228182 (Version 2)
Quarter: 2013Q2

REPORT INFORMATION
  Report Type: Report from Study
  Country: IT (occurrence: IT)
  Receive Date: 20130412
  Receipt Date: 20130615
  Transmission Date: 20140414
  Serious: Yes (Hospitalization)
  Sender: FDA-Public Use
  Company Number: IT-ROCHE-1208738

PATIENT
  Sex: 0

DRUGS (3)
  1. ALTEPLASE [Suspect]
     Indication: ISCHAEMIC STROKE
     Route: 013
  2. ABCIXIMAB [Suspect]
     Indication: ISCHAEMIC STROKE
     Route: 013
  3. HEPARIN [Suspect]
     Indication: ISCHAEMIC STROKE
     Dosage: INITIAL BOLUS OF 5000 IU
     Route: 042

REACTIONS (2)
  - Brain oedema [Unknown]
  - Hydrocephalus [Unknown]
